FAERS Safety Report 4569446-5 (Version None)
Quarter: 2005Q1

REPORT INFORMATION
  Report Type: 
  Country: None (occurrence: None)
  Receive Date: 20050203
  Receipt Date: 20041213
  Transmission Date: 20050727
  Serious: Yes (Death, Other)
  Sender: FDA-Public Use
  Company Number: PHEH2004US13259

PATIENT
  Age: 63 Year
  Sex: 0

DRUGS (4)
  1. TAXOTERE [Concomitant]
     Dosage: 80 MG, QW
     Dates: start: 20021219, end: 20040406
  2. DEXAMETHASONE [Concomitant]
     Dosage: 20 MG, QW
     Route: 042
     Dates: start: 20021219, end: 20040309
  3. EPOGEN [Concomitant]
     Indication: ANAEMIA
  4. ZOMETA [Suspect]
     Indication: METASTASES TO BONE
     Dosage: 4 MG, UNK
     Route: 042
     Dates: start: 20021219, end: 20031125

REACTIONS (2)
  - ASEPTIC NECROSIS BONE [None]
  - RESPIRATORY FAILURE [None]
